FAERS Safety Report 6627792-5 (Version None)
Quarter: 2010Q1

REPORT INFORMATION
  Report Type: 
  Country: None (occurrence: None)
  Receive Date: 20100308
  Receipt Date: 20091125
  Transmission Date: 20100710
  Serious: Yes (Hospitalization)
  Sender: FDA-Public Use
  Company Number: 1000010398

PATIENT
  Age: 65 Year
  Sex: Female
  Weight: 80 kg

DRUGS (7)
  1. NEBIVOLOL HCL [Suspect]
     Indication: HYPERTENSION
     Dosage: 10 MG (10 MG, 1 IN 1 D), ORAL
     Route: 048
     Dates: start: 20091029, end: 20091123
  2. ENALAPRIL MALEATE [Suspect]
     Indication: HYPERTENSION
     Dosage: 10 MG (10 MG, 1 IN 1 D), ORAL
     Route: 048
     Dates: start: 20040506, end: 20091124
  3. METFORMIN HCL [Concomitant]
  4. GLIPIZIDE [Concomitant]
  5. SIMVASTATIN [Concomitant]
  6. ASPIRIN [Concomitant]
  7. OMEGA 3, 6, 9 (TABLETS) [Concomitant]

REACTIONS (6)
  - ARRHYTHMIA [None]
  - LYMPHADENOPATHY [None]
  - METABOLIC SYNDROME [None]
  - PALPITATIONS [None]
  - TRICUSPID VALVE INCOMPETENCE [None]
  - VENTRICULAR EXTRASYSTOLES [None]
